FAERS Safety Report 5194788-2 (Version None)
Quarter: 2006Q4

REPORT INFORMATION
  Report Type: 
  Country: None (occurrence: None)
  Receive Date: 20061229
  Receipt Date: 20061218
  Transmission Date: 20070319
  Serious: Yes (Hospitalization)
  Sender: FDA-Public Use
  Company Number: US-AMGEN-US204007

PATIENT
  Sex: Female

DRUGS (2)
  1. ENBREL [Suspect]
     Indication: RHEUMATOID ARTHRITIS
     Route: 058
     Dates: start: 20020101
  2. ARAVA [Concomitant]
     Dates: start: 20030101

REACTIONS (6)
  - ARTHROPOD BITE [None]
  - PRURITUS [None]
  - SURGERY [None]
  - SWELLING [None]
  - TOE OPERATION [None]
  - TOOTH ABSCESS [None]
